FAERS Safety Report 9445799 (Version 1)
Quarter: 2013Q3

REPORT INFORMATION
  Report Type: Spontaneous
  Country: US (occurrence: US)
  Receive Date: 20130807
  Receipt Date: 20130807
  Transmission Date: 20140515
  Serious: Yes (Other)
  Sender: FDA-Public Use
  Company Number: CHPA2013US012403

PATIENT
  Age: 82 Year
  Sex: Female

DRUGS (1)
  1. PERDIEM OVERNIGHT RELIEF PILLS [Suspect]
     Indication: BOWEL MOVEMENT IRREGULARITY
     Dosage: 2 DF, Q72H
     Route: 048

REACTIONS (4)
  - Blood pressure increased [Recovering/Resolving]
  - Arterial occlusive disease [Unknown]
  - Malaise [Recovering/Resolving]
  - Incorrect drug administration duration [Unknown]
